FAERS Safety Report 6133817-6 (Version None)
Quarter: 2009Q1

REPORT INFORMATION
  Report Type: 
  Country: None (occurrence: None)
  Receive Date: 20090326
  Receipt Date: 20090325
  Transmission Date: 20090719
  Serious: No
  Sender: FDA-Public Use
  Company Number: US-EISAI MEDICAL RESEARCH-E2020-04315-CLI-US

PATIENT
  Sex: Female
  Weight: 66 kg

DRUGS (15)
  1. E2020-SR [Suspect]
     Indication: DEMENTIA ALZHEIMER'S TYPE
     Route: 048
     Dates: start: 20081202, end: 20090318
  2. DETROL LA [Concomitant]
     Indication: HYPERTONIC BLADDER
     Route: 048
     Dates: start: 20050101
  3. HYDROCHLOROTHIAZIDE [Concomitant]
     Indication: HYPERTENSION
     Route: 048
     Dates: start: 19750101
  4. NAMENDA [Concomitant]
     Indication: DEMENTIA ALZHEIMER'S TYPE
     Route: 048
     Dates: start: 20070205
  5. ALTACE [Concomitant]
     Indication: HYPERTENSION
     Route: 048
     Dates: start: 19750101
  6. LOTREL [Concomitant]
     Indication: HYPERTENSION
     Route: 048
     Dates: start: 19900101
  7. VITAMIN B COMPLEX CAP [Concomitant]
     Indication: VITAMIN SUPPLEMENTATION
     Route: 048
     Dates: start: 20040101
  8. BAYER LOW STRENGTH TABLET [Concomitant]
     Indication: CARDIOVASCULAR EVENT PROPHYLAXIS
     Route: 048
     Dates: start: 20000101
  9. FISH OIL [Concomitant]
     Indication: MEDICAL DIET
     Route: 048
     Dates: start: 20060101
  10. TIMOLOL MALEATE [Concomitant]
     Indication: GLAUCOMA
     Dates: start: 19900101
  11. LEVOXYL [Concomitant]
     Indication: HYPOTHYROIDISM
     Route: 048
     Dates: start: 19800101
  12. LUMIGAN [Concomitant]
     Indication: GLAUCOMA
     Dates: start: 19900101
  13. VITAMIN-MINERAL COMPOUND TAB [Concomitant]
     Indication: MEDICAL DIET
     Route: 048
     Dates: start: 20070101
  14. NASONEX [Concomitant]
     Indication: RHINITIS ALLERGIC
     Dates: start: 20080827
  15. MICRO-K [Concomitant]
     Indication: HYPERKALAEMIA
     Route: 048
     Dates: start: 20080827

REACTIONS (1)
  - ELECTROCARDIOGRAM QT PROLONGED [None]
